FAERS Safety Report 8050895-8 (Version None)
Quarter: 2012Q1

REPORT INFORMATION
  Report Type: 
  Country: None (occurrence: None)
  Receive Date: 20120117
  Receipt Date: 20120109
  Transmission Date: 20120608
  Serious: Yes (Other)
  Sender: FDA-Public Use
  Company Number: PHHY2012CA001137

PATIENT
  Sex: Female

DRUGS (1)
  1. ZOLEDRONOC ACID [Suspect]
     Indication: OSTEITIS DEFORMANS
     Dosage: 5 MG, UNK
     Route: 042
     Dates: start: 20110216

REACTIONS (5)
  - URINARY TRACT INFECTION [None]
  - DECREASED APPETITE [None]
  - NAUSEA [None]
  - BLOOD CALCIUM DECREASED [None]
  - MALAISE [None]
